FAERS Safety Report 26138638 (Version 1)
Quarter: 2025Q4

REPORT INFORMATION
  Report Type: Spontaneous
  Country: JP (occurrence: JP)
  Receive Date: 20251210
  Receipt Date: 20251210
  Transmission Date: 20260118
  Serious: Yes (Other)
  Sender: BOEHRINGER INGELHEIM
  Company Number: JP-BoehringerIngelheim-2025-BI-112190

PATIENT
  Age: 58 Year
  Sex: Male

DRUGS (8)
  1. DABIGATRAN [Suspect]
     Active Substance: DABIGATRAN
     Indication: Atrial fibrillation
  2. DABIGATRAN [Suspect]
     Active Substance: DABIGATRAN
  3. AMIODARONE [Concomitant]
     Active Substance: AMIODARONE
     Indication: Product used for unknown indication
  4. BISOPROLOL [Concomitant]
     Active Substance: BISOPROLOL
     Indication: Cardiac failure
  5. ENALAPRIL [Concomitant]
     Active Substance: ENALAPRIL
     Indication: Cardiac failure
  6. SPIRONOLACTONE [Concomitant]
     Active Substance: SPIRONOLACTONE
     Indication: Cardiac failure
  7. TOLVAPTAN [Concomitant]
     Active Substance: TOLVAPTAN
     Indication: Cardiac failure
  8. EMPAGLIFLOZIN [Concomitant]
     Active Substance: EMPAGLIFLOZIN
     Indication: Cardiac failure

REACTIONS (3)
  - Atrial thrombosis [Recovering/Resolving]
  - Tachyarrhythmia [Unknown]
  - Post procedural complication [Unknown]
